FAERS Safety Report 8619500-3 (Version None)
Quarter: 2012Q3

REPORT INFORMATION
  Report Type: 
  Country: None (occurrence: None)
  Receive Date: 20120824
  Receipt Date: 20120327
  Transmission Date: 20120928
  Serious: No
  Sender: FDA-Public Use
  Company Number: US-ASTRAZENECA-2012SE20788

PATIENT
  Sex: Male

DRUGS (1)
  1. SYMBICORT [Suspect]
     Indication: CHRONIC OBSTRUCTIVE PULMONARY DISEASE
     Dosage: UNKOWN FREQUENCY
     Route: 055

REACTIONS (3)
  - SPUTUM INCREASED [None]
  - ALLERGY TO CHEMICALS [None]
  - COUGH [None]
